FAERS Safety Report 8999254 (Version 1)
Quarter: 2013Q1

REPORT INFORMATION
  Report Type: Spontaneous
  Country: US (occurrence: US)
  Receive Date: 20130103
  Receipt Date: 20130103
  Transmission Date: 20140127
  Serious: No
  Sender: FDA-Public Use
  Company Number: US-PFIZER INC-2012332670

PATIENT
  Sex: Female

DRUGS (2)
  1. NEURONTIN [Suspect]
     Dosage: 600 MG, UNK
  2. NEURONTIN [Suspect]
     Dosage: 300 MG, UNK

REACTIONS (4)
  - Malaise [Unknown]
  - Dysphonia [Unknown]
  - Tremor [Unknown]
  - Nausea [Unknown]
